FAERS Safety Report 5279766-7 (Version None)
Quarter: 2007Q1

REPORT INFORMATION
  Report Type: 
  Country: None (occurrence: None)
  Receive Date: 20061208
  Receipt Date: 20050504
  Transmission Date: 20070707
  Serious: Yes (Hospitalization)
  Sender: FDA-Public Use
  Company Number: 2005UW04276

PATIENT
  Age: 76 Year
  Sex: Male
  Weight: 76.2043 kg

DRUGS (4)
  1. CRESTOR [Suspect]
     Indication: DIABETES MELLITUS NON-INSULIN-DEPENDENT
     Dosage: 10 MG QD PO
     Route: 048
     Dates: start: 20041020, end: 20041204
  2. CRESTOR [Suspect]
     Indication: HYPERLIPIDAEMIA
     Dosage: 10 MG QD PO
     Route: 048
     Dates: start: 20041020, end: 20041204
  3. AMARYL [Concomitant]
  4. ASPIRIN [Concomitant]

REACTIONS (1)
  - PANCREATITIS ACUTE [None]
